FAERS Safety Report 9015649 (Version 1)
Quarter: 2013Q1

REPORT INFORMATION
  Report Type: Spontaneous
  Country: US (occurrence: US)
  Receive Date: 20130116
  Receipt Date: 20130116
  Transmission Date: 20140127
  Serious: Yes (Other)
  Sender: FDA-Public Use
  Company Number: US-009507513-1201USA04211

PATIENT
  Age: 36 Month
  Sex: Male
  Weight: 16.33 kg

DRUGS (2)
  1. SINGULAIR [Suspect]
     Indication: FOOD ALLERGY
     Dosage: 4 MG, QD
     Route: 048
     Dates: start: 20100224, end: 20100407
  2. SINGULAIR [Suspect]
     Indication: MULTIPLE ALLERGIES

REACTIONS (10)
  - Abnormal behaviour [Unknown]
  - Crying [Unknown]
  - Fear [Unknown]
  - Hyperhidrosis [Unknown]
  - Mood swings [Unknown]
  - Oppositional defiant disorder [Unknown]
  - Screaming [Unknown]
  - Sleep terror [Unknown]
  - Aggression [Unknown]
  - Hallucination, visual [Unknown]
